FAERS Safety Report 6608362-1 (Version None)
Quarter: 2010Q1

REPORT INFORMATION
  Report Type: 
  Country: None (occurrence: None)
  Receive Date: 20100225
  Receipt Date: 20100225
  Transmission Date: 20100710
  Serious: Yes (Disabling)
  Sender: FDA-Public Use
  Company Number: None

PATIENT
  Sex: Male
  Weight: 79.5 kg

DRUGS (2)
  1. TRANYLCYPROMINE SULFATE [Suspect]
     Indication: DEPRESSION
     Dosage: 10MG TABLET (60MG DAILY) X3, TWICE DAILY ORAL
     Route: 048
     Dates: start: 20041001, end: 20080101
  2. TRANYLCYPROMINE SULFATE [Suspect]
     Indication: DEPRESSION
     Dosage: 10MG TABLET (60MG DAILY) X3, TWICE DAILY ORAL
     Route: 048
     Dates: start: 20080701

REACTIONS (8)
  - AMNESIA [None]
  - BRAIN INJURY [None]
  - DISTURBANCE IN ATTENTION [None]
  - EMOTIONAL DISTRESS [None]
  - IMPAIRED WORK ABILITY [None]
  - MENTAL IMPAIRMENT [None]
  - NERVOUS SYSTEM DISORDER [None]
  - SPEECH DISORDER [None]
